FAERS Safety Report 13613946 (Version 1)
Quarter: 2017Q2

REPORT INFORMATION
  Report Type: Spontaneous
  Country: US (occurrence: US)
  Receive Date: 20170605
  Receipt Date: 20170605
  Transmission Date: 20170830
  Serious: No
  Sender: FDA-Public Use
  Company Number: None

PATIENT
  Sex: Female

DRUGS (1)
  1. IBRANCE [Suspect]
     Active Substance: PALBOCICLIB
     Indication: PRODUCT USED FOR UNKNOWN INDICATION
     Dosage: 125MG DAILY FOR 21 DAYS ON 7 DAYS OFF BY MOUTH
     Route: 048
     Dates: start: 20170511

REACTIONS (2)
  - Alopecia [None]
  - Frequent bowel movements [None]

NARRATIVE: CASE EVENT DATE: 20170602
